FAERS Safety Report 11790142 (Version 1)
Quarter: 2015Q4

REPORT INFORMATION
  Report Type: Spontaneous
  Country: ES (occurrence: ES)
  Receive Date: 20151201
  Receipt Date: 20151201
  Transmission Date: 20160305
  Serious: Yes (Other)
  Sender: FDA-Public Use
  Company Number: ES-HQ SPECIALTY-ES-2015INT000661

PATIENT

DRUGS (3)
  1. CISPLATIN. [Suspect]
     Active Substance: CISPLATIN
     Indication: OVARIAN CANCER STAGE III
     Dosage: 100 MG/M2, ON DAY 2
     Route: 033
  2. PACLITAXEL. [Suspect]
     Active Substance: PACLITAXEL
     Dosage: 60 MG/M2, ON DAY 8 EVERY 21 DAYS FOR A MAXIMUM OF 6 CYCLES
     Route: 033
  3. PACLITAXEL. [Suspect]
     Active Substance: PACLITAXEL
     Indication: OVARIAN CANCER STAGE III
     Dosage: 175 MG/M2, FOR 3 HOURS ON DAY 1
     Route: 042

REACTIONS (2)
  - Drug interaction [Recovered/Resolved]
  - Neuropathy peripheral [Recovered/Resolved with Sequelae]
